FAERS Safety Report 19680745 (Version 1)
Quarter: 2021Q3

REPORT INFORMATION
  Report Type: Spontaneous
  Country: US (occurrence: US)
  Receive Date: 20210810
  Receipt Date: 20210810
  Transmission Date: 20211014
  Serious: Yes (Hospitalization)
  Sender: FDA-Public Use
  Company Number: None

PATIENT
  Age: 46 Year
  Sex: Female
  Weight: 78.9 kg

DRUGS (1)
  1. OPTIRAY 300 [Suspect]
     Active Substance: IOVERSOL
     Indication: VASCULAR IMAGING
     Dates: start: 20191228, end: 20191228

REACTIONS (1)
  - Embolic stroke [None]

NARRATIVE: CASE EVENT DATE: 20191228
